FAERS Safety Report 12391698 (Version 1)
Quarter: 2016Q2

REPORT INFORMATION
  Report Type: Report from Study
  Country: BR (occurrence: BR)
  Receive Date: 20160522
  Receipt Date: 20160522
  Transmission Date: 20160815
  Serious: Yes (Death)
  Sender: FDA-Public Use
  Company Number: PHHY2016BR069879

PATIENT
  Sex: Female
  Weight: 80 kg

DRUGS (1)
  1. EXELON PATCH [Suspect]
     Active Substance: RIVASTIGMINE
     Indication: DEPRESSION
     Dosage: PATCH 5 (CM2)
     Route: 062

REACTIONS (5)
  - Malaise [Unknown]
  - Femur fracture [Fatal]
  - Renal disorder [Fatal]
  - Product use issue [Unknown]
  - Fall [Fatal]
